FAERS Safety Report 6411274-X (Version None)
Quarter: 2009Q4

REPORT INFORMATION
  Report Type: 
  Country: None (occurrence: None)
  Receive Date: 20091023
  Receipt Date: 20091013
  Transmission Date: 20100525
  Serious: Yes (Life-Threatening, Hospitalization, Other)
  Sender: FDA-Public Use
  Company Number: GB-RANBAXY-2009RR-28671

PATIENT
  Age: 39 Year
  Sex: Male

DRUGS (11)
  1. CLOMIPRAMINE [Suspect]
     Indication: ANXIETY
     Dosage: UNK
     Route: 048
     Dates: start: 20090217
  2. CLOMIPRAMINE [Suspect]
     Indication: DEPRESSION
  3. LISINOPRIL [Suspect]
     Indication: HYPERTENSION
     Dosage: 5 MG, QD
     Route: 048
     Dates: start: 20090217
  4. METFORMIN HCL [Suspect]
     Indication: TYPE 2 DIABETES MELLITUS
     Dosage: 500 MG, TID
     Route: 048
     Dates: start: 20090217
  5. OMEPRAZOLE [Suspect]
     Dosage: UNK
     Dates: start: 20090217
  6. SIMVASTATIN [Suspect]
     Indication: BLOOD CHOLESTEROL INCREASED
     Dosage: UNK
     Route: 048
     Dates: start: 20090217
  7. CLOZARIL [Suspect]
     Indication: SCHIZOPHRENIA
     Dosage: UNK
     Route: 048
     Dates: start: 20031202
  8. CLOZARIL [Suspect]
     Dosage: 600 MG, QD
     Dates: start: 20090217
  9. HYOSCINE [Suspect]
     Dosage: UNK
     Dates: start: 20090217
  10. SENNA [Suspect]
     Indication: CONSTIPATION
     Route: 048
  11. THIAMIDE [Concomitant]
     Dosage: 100 MG, TID
     Route: 048

REACTIONS (6)
  - AGITATION [None]
  - COMA SCALE ABNORMAL [None]
  - MECHANICAL VENTILATION [None]
  - NEUTROPHIL COUNT INCREASED [None]
  - OVERDOSE [None]
  - WHITE BLOOD CELL COUNT INCREASED [None]
